FAERS Safety Report 9567336 (Version 2)
Quarter: 2013Q3

REPORT INFORMATION
  Report Type: Spontaneous
  Country: US (occurrence: US)
  Receive Date: 20130930
  Receipt Date: 20130930
  Transmission Date: 20140515
  Serious: No
  Sender: FDA-Public Use
  Company Number: US-AMGEN-USASP2012061947

PATIENT
  Age: 58 Year
  Sex: Female
  Weight: 113.38 kg

DRUGS (12)
  1. ENBREL [Suspect]
     Indication: RHEUMATOID ARTHRITIS
     Dosage: 50 MG, QWK
     Route: 058
     Dates: start: 201207
  2. METOPROLOL [Concomitant]
     Dosage: 200 MG, UNK
  3. TRIAMTEREEN/HYDROCHLOOTTHIAZIDE [Concomitant]
     Dosage: 37.5-25
  4. METHOTREXATE [Concomitant]
     Dosage: 50MG-2 ML
  5. FOLIC ACID [Concomitant]
     Dosage: 20 MG, UNK
  6. LEFLUNOMIDE [Concomitant]
     Dosage: 10 MG, UNK
  7. METFORMIN [Concomitant]
     Dosage: 750 MG, UNK
  8. GLIPIZIDE [Concomitant]
     Dosage: 5 MG, UNK
  9. ASPIRIN LOW [Concomitant]
     Dosage: 81 MG, UNK
  10. FISH OIL [Concomitant]
     Dosage: UNK
  11. KLONOPIN [Concomitant]
     Dosage: 1 MG, UNK
  12. ESSENTIAL [Concomitant]
     Dosage: UNK

REACTIONS (6)
  - Musculoskeletal stiffness [Not Recovered/Not Resolved]
  - Fatigue [Unknown]
  - Pain [Not Recovered/Not Resolved]
  - Hypoaesthesia [Not Recovered/Not Resolved]
  - Paraesthesia [Not Recovered/Not Resolved]
  - Injection site pain [Recovered/Resolved]
